FAERS Safety Report 4912166-5 (Version None)
Quarter: 2006Q1

REPORT INFORMATION
  Report Type: 
  Country: None (occurrence: None)
  Receive Date: 20060213
  Receipt Date: 20060201
  Transmission Date: 20060701
  Serious: Yes (Other)
  Sender: FDA-Public Use
  Company Number: 2006-02-0059

PATIENT
  Age: 31 Year
  Sex: Male

DRUGS (4)
  1. REBETOL [Suspect]
     Indication: HEPATITIS C
     Dosage: INTRAMUSCULAR
     Route: 030
  2. INTRON A [Suspect]
     Indication: HEPATITIS C
     Dosage: ORAL
     Route: 048
  3. CARBAMAZEPINE [Concomitant]
  4. WARFARIN SODIUM [Concomitant]

REACTIONS (6)
  - ANTIDIURETIC HORMONE ABNORMALITY [None]
  - BLOOD OSMOLARITY DECREASED [None]
  - BLOOD SODIUM DECREASED [None]
  - HYPOURICAEMIA [None]
  - MALAISE [None]
  - URINE OSMOLARITY INCREASED [None]
